FAERS Safety Report 20460893 (Version 2)
Quarter: 2022Q1

REPORT INFORMATION
  Report Type: Spontaneous
  Country: US (occurrence: US)
  Receive Date: 20220211
  Receipt Date: 20220221
  Transmission Date: 20220423
  Serious: Yes (Other)
  Sender: FDA-Public Use
  Company Number: US-009507513-2202USA002419

PATIENT
  Age: 67 Year
  Sex: Male

DRUGS (11)
  1. KEYTRUDA [Suspect]
     Active Substance: PEMBROLIZUMAB
     Indication: Lung neoplasm malignant
     Dosage: UNK UNK, EVERY 3 WEEKS
     Route: 042
     Dates: start: 202109, end: 20220202
  2. ARIPIPRAZOLE [Concomitant]
     Active Substance: ARIPIPRAZOLE
  3. CLONAZEPAM [Concomitant]
     Active Substance: CLONAZEPAM
  4. METOPROLOL [Concomitant]
     Active Substance: METOPROLOL
  5. FINASTERIDE [Concomitant]
     Active Substance: FINASTERIDE
  6. DULOXETINE [Concomitant]
     Active Substance: DULOXETINE
  7. GABAPENTIN [Concomitant]
     Active Substance: GABAPENTIN
  8. MIRTAZAPINE [Concomitant]
     Active Substance: MIRTAZAPINE
  9. ZOLPIDEM [Concomitant]
     Active Substance: ZOLPIDEM TARTRATE
  10. ASPIRIN [Concomitant]
     Active Substance: ASPIRIN
  11. SIMVASTATIN [Concomitant]
     Active Substance: SIMVASTATIN

REACTIONS (4)
  - Blindness unilateral [Not Recovered/Not Resolved]
  - Eyelid ptosis [Not Recovered/Not Resolved]
  - Acne [Not Recovered/Not Resolved]
  - Psoriasis [Not Recovered/Not Resolved]

NARRATIVE: CASE EVENT DATE: 20211201
